FAERS Safety Report 16789462 (Version 1)
Quarter: 2019Q3

REPORT INFORMATION
  Report Type: Spontaneous
  Country: US (occurrence: US)
  Receive Date: 20190910
  Receipt Date: 20190910
  Transmission Date: 20191005
  Serious: No
  Sender: FDA-Public Use
  Company Number: US-CIPLA LTD.-2018US24000

PATIENT

DRUGS (5)
  1. LEVOTHYROXINE. [Concomitant]
     Active Substance: LEVOTHYROXINE
     Indication: HYPOTHYROIDISM
     Dosage: 112 MCG, QD
     Route: 065
     Dates: start: 2000
  2. PRAVASTATIN. [Concomitant]
     Active Substance: PRAVASTATIN
     Indication: BLOOD CHOLESTEROL INCREASED
     Dosage: 10 MG, QD
     Route: 065
     Dates: start: 2007
  3. SOTALOL. [Concomitant]
     Active Substance: SOTALOL
     Indication: CARDIAC ASSISTANCE DEVICE USER
     Dosage: 80 MG, BID
     Route: 065
     Dates: start: 2007
  4. ALENDRONATE [Suspect]
     Active Substance: ALENDRONATE SODIUM
     Indication: OSTEOPOROSIS
     Dosage: 70 MG, ONCE WEEKLY
     Route: 048
     Dates: start: 2017
  5. ALENDRONATE [Suspect]
     Active Substance: ALENDRONATE SODIUM
     Dosage: 2 DF, BID, CONSUMED TWO ALENDRONATE SODIUM TABLETS IN A DAY, ONE IN THE MORNING AND ONE TABLET AGAIN
     Route: 048
     Dates: start: 20181220, end: 20181220

REACTIONS (2)
  - Product administration error [Unknown]
  - Accidental overdose [Unknown]

NARRATIVE: CASE EVENT DATE: 20181220
